FAERS Safety Report 5365528-9 (Version None)
Quarter: 2007Q2

REPORT INFORMATION
  Report Type: 
  Country: None (occurrence: None)
  Receive Date: 20070621
  Receipt Date: 20070615
  Transmission Date: 20071010
  Serious: Yes (Death)
  Sender: FDA-Public Use
  Company Number: A0657235A

PATIENT
  Age: 41 Year
  Sex: Male

DRUGS (4)
  1. WELLBUTRIN SR [Suspect]
     Indication: MAJOR DEPRESSION
     Dosage: 150MG TWICE PER DAY
     Route: 048
     Dates: start: 20050504, end: 20050501
  2. PAXIL [Suspect]
     Indication: MAJOR DEPRESSION
     Dosage: 10MG AT NIGHT
     Route: 048
     Dates: start: 20050317, end: 20050301
  3. AMBIEN [Concomitant]
     Dosage: 10MG AT NIGHT
     Dates: start: 20050401, end: 20050501
  4. CELEXA [Concomitant]
     Indication: MAJOR DEPRESSION
     Dosage: 20MG PER DAY
     Dates: start: 20050101, end: 20050101

REACTIONS (6)
  - ASPHYXIA [None]
  - COMPLETED SUICIDE [None]
  - DEPRESSION [None]
  - DISTURBANCE IN ATTENTION [None]
  - FATIGUE [None]
  - SUICIDAL IDEATION [None]
